FAERS Safety Report 9004705 (Version 2)
Quarter: 2013Q2

REPORT INFORMATION
  Report Type: Spontaneous
  Country: US (occurrence: None)
  Receive Date: 20120508
  Receipt Date: 20121107
  Transmission Date: 20140414
  Serious: Yes (Other)
  Sender: FDA-Public Use
  Company Number: 2012HGS-003234

PATIENT
  Age: 40 Year
  Sex: Female
  Weight: 146.06 kg

DRUGS (21)
  1. BENLYSTA [Suspect]
     Dosage: 1 IN 28 D
     Route: 041
     Dates: start: 20120118
  2. PREDNISONE [Concomitant]
  3. AZATHIOPRINE [Concomitant]
  4. IBUPROFEN (IBUPROFEN SODIUM) [Concomitant]
  5. PLAQUENIL (HYDROXYCHLOROQUINE PHOSPHATE) [Concomitant]
  6. OXYCONTIN (OXYCODONE HYDROCHLORIDE) [Concomitant]
  7. AMITRIPTYLINE [Concomitant]
  8. BENADRYL (DIPHENHYDRAMINE HYDROCHLORIDE) [Concomitant]
  9. COLACE [Concomitant]
  10. COMPAZINE (PROCHLORPERAZINE EDISYLATE) [Concomitant]
  11. DILAUDID (HYDROMORPHONE HYDROCHLORIDE) [Concomitant]
  12. HYDROXYZINE [Concomitant]
  13. IMITREX (SUMATRIPTAN) [Concomitant]
  14. LYRICA (PREGABALIN) [Concomitant]
  15. MACROBID (NITROFURANTOIN) [Concomitant]
  16. OXYCODONE [Concomitant]
  17. PEPTO BISMOL (BISMUTH SUBSALICYLATE) [Concomitant]
  18. PRILOSEC (OMEPRAZOLE) [Concomitant]
  19. PYRIDIUM (PHENAZOPYRIDINE HYDROCHLORIDE) [Concomitant]
  20. RELPAX (ELETRIPTAN HYDROBROMIDE) [Concomitant]
  21. TOPAMAX (TOPIRAMATE) [Concomitant]

REACTIONS (4)
  - Vomiting [None]
  - Urticaria [None]
  - Diarrhoea [None]
  - Nausea [None]
